FAERS Safety Report 20144535 (Version 1)
Quarter: 2021Q4

REPORT INFORMATION
  Report Type: Spontaneous
  Country: US (occurrence: None)
  Receive Date: 20211202
  Receipt Date: 20211202
  Transmission Date: 20220303
  Serious: No
  Sender: FDA-Public Use
  Company Number: None

PATIENT
  Age: 51 Year
  Sex: Female
  Weight: 122 kg

DRUGS (2)
  1. LISINOPRIL [Suspect]
     Active Substance: LISINOPRIL
     Indication: Hypertension
     Dosage: FREQUENCY : DAILY;?
     Route: 048
     Dates: start: 20190618, end: 20210707
  2. CHOLECALCIFEROL [Suspect]
     Active Substance: CHOLECALCIFEROL
     Indication: Vitamin D deficiency
     Dosage: OTHER QUANTITY : 2000 UNITS;?FREQUENCY : DAILY;?
     Route: 048
     Dates: start: 20200601

REACTIONS (4)
  - Swelling face [None]
  - Angioedema [None]
  - Product physical issue [None]
  - Therapy cessation [None]

NARRATIVE: CASE EVENT DATE: 20210707
